FAERS Safety Report 8300706-8 (Version None)
Quarter: 2012Q2

REPORT INFORMATION
  Report Type: 
  Country: None (occurrence: None)
  Receive Date: 20120420
  Receipt Date: 20120413
  Transmission Date: 20120825
  Serious: Yes (Hospitalization)
  Sender: FDA-Public Use
  Company Number: PHEH2012US006024

PATIENT
  Sex: Female
  Weight: 59.5 kg

DRUGS (5)
  1. FOLIC ACID [Concomitant]
     Route: 048
  2. PERCOCET [Concomitant]
     Route: 048
  3. EXJADE [Suspect]
     Indication: IRON OVERLOAD
  4. HYDROXYUREA [Concomitant]
     Dosage: 500 MG, BID
     Route: 048
  5. EXJADE [Suspect]
     Indication: SICKLE CELL ANAEMIA
     Dosage: 1000 MG, EVERY OTHER DAY
     Route: 048
     Dates: start: 20111010

REACTIONS (3)
  - SICKLE CELL ANAEMIA WITH CRISIS [None]
  - SINUSITIS [None]
  - DRY EYE [None]
